FAERS Safety Report 10994439 (Version 1)
Quarter: 2015Q2

REPORT INFORMATION
  Report Type: Spontaneous
  Country: US (occurrence: US)
  Receive Date: 20150407
  Receipt Date: 20150407
  Transmission Date: 20150821
  Serious: Yes (Other)
  Sender: FDA-Public Use
  Company Number: US-SA-2015SA039155

PATIENT
  Sex: Male

DRUGS (7)
  1. AMBIEN CR [Suspect]
     Active Substance: ZOLPIDEM TARTRATE
     Indication: SLEEP DISORDER
     Dosage: TOOK AT NIGHT BETWEEN 10:45 PM AND 12:30 AM
     Route: 048
     Dates: start: 20060508
  2. WELLBUTRIN [Interacting]
     Active Substance: BUPROPION HYDROCHLORIDE
     Indication: STRESS
     Dosage: IN THE MORNING
     Route: 065
  3. LEXAPRO [Concomitant]
     Active Substance: ESCITALOPRAM OXALATE
  4. ST. JOHN^S WORT [Interacting]
     Active Substance: ST. JOHN^S WORT
     Dosage: TAKEN DURING THE DAY, MORNING OR NIGHT
     Route: 065
  5. PROPRANOLOL HYDROCHLORIDE. [Interacting]
     Active Substance: PROPRANOLOL HYDROCHLORIDE
     Indication: HYPERTENSION
     Dosage: IN THE MORNING
     Route: 065
  6. ZOLOFT [Concomitant]
     Active Substance: SERTRALINE HYDROCHLORIDE
  7. WELLBUTRIN [Interacting]
     Active Substance: BUPROPION HYDROCHLORIDE
     Indication: DEPRESSION
     Dosage: IN THE MORNING
     Route: 065

REACTIONS (80)
  - Personality disorder [Unknown]
  - Anger [Unknown]
  - Obsessive thoughts [Unknown]
  - Rapid eye movements sleep abnormal [Unknown]
  - Apathy [Unknown]
  - Conversion disorder [Unknown]
  - Substance-induced psychotic disorder [Unknown]
  - Shock [Unknown]
  - Herpes zoster [Unknown]
  - Hypoaesthesia [Unknown]
  - Poisoning [Unknown]
  - Paranoia [Unknown]
  - Diplopia [Unknown]
  - Generalised oedema [Unknown]
  - Arthritis [Unknown]
  - Vertigo [Unknown]
  - Quality of life decreased [Unknown]
  - Feeling drunk [Unknown]
  - Bipolar disorder [Unknown]
  - Hallucination, auditory [Unknown]
  - Memory impairment [Unknown]
  - Cognitive disorder [Unknown]
  - Depression [Unknown]
  - Psychomotor skills impaired [Unknown]
  - Syncope [Unknown]
  - Adjustment disorder with mixed disturbance of emotion and conduct [Unknown]
  - Mental status changes [Unknown]
  - Stupor [Unknown]
  - Photopsia [Unknown]
  - Headache [Unknown]
  - Paradoxical drug reaction [Unknown]
  - Amnesia [Unknown]
  - Hostility [Unknown]
  - Somnolence [Unknown]
  - Psychotic disorder [Unknown]
  - Illusion [Unknown]
  - Visual acuity reduced [Unknown]
  - Yawning [Unknown]
  - Suicide attempt [Unknown]
  - Depersonalisation [Unknown]
  - Condition aggravated [Unknown]
  - Retrograde amnesia [Unknown]
  - Stress [Unknown]
  - Confusional state [Unknown]
  - Mental disorder [Unknown]
  - Fatigue [Unknown]
  - Drug interaction [Unknown]
  - Suicidal ideation [Unknown]
  - Loss of consciousness [Unknown]
  - Anxiety [Unknown]
  - Nightmare [Unknown]
  - Disorientation [Unknown]
  - Neurosis [Unknown]
  - Somnambulism [Unknown]
  - Depressed level of consciousness [Unknown]
  - Homicide [Unknown]
  - Toxicity to various agents [Unknown]
  - Cerebrovascular disorder [Unknown]
  - Post-traumatic stress disorder [Unknown]
  - Loss of employment [Unknown]
  - Feeling abnormal [Unknown]
  - Mania [Unknown]
  - Mood swings [Unknown]
  - Delusion [Unknown]
  - Indifference [Unknown]
  - Intelligence test abnormal [Unknown]
  - Abnormal behaviour [Unknown]
  - Sedation [Unknown]
  - Aggression [Unknown]
  - Disinhibition [Unknown]
  - Accommodation disorder [Unknown]
  - Hallucination, visual [Unknown]
  - Thinking abnormal [Unknown]
  - Panic attack [Unknown]
  - Insomnia [Unknown]
  - Dreamy state [Unknown]
  - Agitation [Unknown]
  - Visual impairment [Unknown]
  - Glaucoma [Unknown]
  - Serotonin syndrome [Unknown]

NARRATIVE: CASE EVENT DATE: 20060516
